FAERS Safety Report 25786209 (Version 2)
Quarter: 2025Q3

REPORT INFORMATION
  Report Type: Report from Study
  Country: CA (occurrence: CA)
  Receive Date: 20250910
  Receipt Date: 20250918
  Transmission Date: 20251021
  Serious: Yes (Hospitalization, Other)
  Sender: PHARMING GROUP
  Company Number: CA-PHARMING-PHACA2025001253

PATIENT

DRUGS (6)
  1. LENIOLISIB PHOSPHATE [Suspect]
     Active Substance: LENIOLISIB PHOSPHATE
     Indication: Product used for unknown indication
     Dosage: 70 MILLIGRAM, BID
     Route: 048
     Dates: start: 202505
  2. LENIOLISIB PHOSPHATE [Suspect]
     Active Substance: LENIOLISIB PHOSPHATE
     Dosage: 70 MILLIGRAM, BID
     Route: 048
     Dates: start: 20250830
  3. HUMAN IMMUNOGLOBULIN G [Concomitant]
     Active Substance: HUMAN IMMUNOGLOBULIN G
     Indication: Product used for unknown indication
  4. CALCIUM [Concomitant]
     Active Substance: CALCIUM
     Indication: Product used for unknown indication
  5. ERGOCALCIFEROL [Concomitant]
     Active Substance: ERGOCALCIFEROL
     Indication: Product used for unknown indication
  6. CARVEDILOL [Concomitant]
     Active Substance: CARVEDILOL
     Indication: Product used for unknown indication

REACTIONS (3)
  - Pneumonia [Not Recovered/Not Resolved]
  - Colitis [Not Recovered/Not Resolved]
  - Product availability issue [Unknown]

NARRATIVE: CASE EVENT DATE: 20250101
